FAERS Safety Report 4571997-4 (Version None)
Quarter: 2005Q1

REPORT INFORMATION
  Report Type: 
  Country: None (occurrence: None)
  Receive Date: 20050203
  Receipt Date: 20050203
  Transmission Date: 20050727
  Serious: Yes (Life-Threatening)
  Sender: FDA-Public Use
  Company Number: None

PATIENT
  Sex: Male
  Weight: 86.1834 kg

DRUGS (2)
  1. AMIODARONE HCL [Suspect]
     Indication: ATRIAL FIBRILLATION
     Dosage: 200 MG DAILY
     Dates: start: 20011001, end: 20040423
  2. PACERONE [Suspect]

REACTIONS (3)
  - DRUG INEFFECTIVE [None]
  - LUNG NEOPLASM MALIGNANT [None]
  - REFUSAL OF TREATMENT BY PATIENT [None]
